FAERS Safety Report 7986138-0 (Version None)
Quarter: 2011Q4

REPORT INFORMATION
  Report Type: 
  Country: None (occurrence: None)
  Receive Date: 20111216
  Receipt Date: 20111209
  Transmission Date: 20120403
  Serious: Yes (Hospitalization, Other)
  Sender: FDA-Public Use
  Company Number: JP-PFIZER INC-2008083097

PATIENT
  Age: 59 Year
  Sex: Male
  Weight: 63 kg

DRUGS (1)
  1. XALATAN [Suspect]
     Indication: OPEN ANGLE GLAUCOMA
     Dosage: RIGHT EYE
     Route: 047
     Dates: start: 19990701, end: 20060625

REACTIONS (3)
  - MACULAR CYST [None]
  - CATARACT [None]
  - VITREOUS ADHESIONS [None]
